FAERS Safety Report 4582683-9 (Version None)
Quarter: 2005Q1

REPORT INFORMATION
  Report Type: 
  Country: None (occurrence: None)
  Receive Date: 20050215
  Receipt Date: 20030528
  Transmission Date: 20050727
  Serious: Yes (Death, Life-Threatening, Hospitalization, Disabling, Other)
  Sender: FDA-Public Use
  Company Number: US-GLAXOSMITHKLINE-A0410153B

PATIENT
  Age: 42 Year
  Sex: Female

DRUGS (5)
  1. BC ARTHRITIS STRENGTH POWDER [Suspect]
  2. TYLENOL (CAPLET) [Suspect]
  3. DELTASONE [Concomitant]
  4. RHEUMATREX [Concomitant]
  5. BC SINUS COLD (UNSPEC.)-PHENYLPROPANOLAMINE [Concomitant]
     Route: 048
     Dates: start: 20010319

REACTIONS (51)
  - ACUTE RESPIRATORY FAILURE [None]
  - BINOCULAR EYE MOVEMENT DISORDER [None]
  - BLOOD PRESSURE INCREASED [None]
  - BLOOD PRESSURE SYSTOLIC INCREASED [None]
  - BRADYCARDIA [None]
  - BRAIN DEATH [None]
  - BRAIN HERNIATION [None]
  - BRAIN OEDEMA [None]
  - CARDIAC ARREST [None]
  - CARDIAC DISORDER [None]
  - CARDIOMEGALY [None]
  - CARDIOMYOPATHY [None]
  - CEREBRAL VENTRICLE DILATATION [None]
  - CEREBROVASCULAR SPASM [None]
  - COMA [None]
  - CONFUSIONAL STATE [None]
  - CONVULSION [None]
  - DELIRIUM [None]
  - DEPRESSED LEVEL OF CONSCIOUSNESS [None]
  - EJECTION FRACTION DECREASED [None]
  - ELECTROCARDIOGRAM ST-T CHANGE [None]
  - ELECTROCARDIOGRAM ST-T SEGMENT ABNORMAL [None]
  - HAEMORRHAGIC STROKE [None]
  - HEADACHE [None]
  - HYDROCEPHALUS [None]
  - HYPOAESTHESIA [None]
  - HYPOKINESIA [None]
  - HYPOTENSION [None]
  - HYPOXIA [None]
  - IMMUNOSUPPRESSION [None]
  - INTRACRANIAL PRESSURE INCREASED [None]
  - INTRAVENTRICULAR HAEMORRHAGE [None]
  - LETHARGY [None]
  - LIMB DEFORMITY [None]
  - LOSS OF CONSCIOUSNESS [None]
  - MYOCARDIAL INFARCTION [None]
  - NAUSEA [None]
  - PAIN [None]
  - PARAESTHESIA [None]
  - PNEUMONIA [None]
  - PNEUMONIA ASPIRATION [None]
  - PULMONARY OEDEMA [None]
  - PUPIL FIXED [None]
  - RED BLOOD CELLS CSF POSITIVE [None]
  - SUBARACHNOID HAEMORRHAGE [None]
  - SUPRAVENTRICULAR TACHYCARDIA [None]
  - SYNCOPE [None]
  - TACHYCARDIA [None]
  - URINARY INCONTINENCE [None]
  - VENTRICULAR DYSKINESIA [None]
  - VOMITING [None]
